FAERS Safety Report 12922497 (Version 1)
Quarter: 2016Q4

REPORT INFORMATION
  Report Type: Spontaneous
  Country: JP (occurrence: JP)
  Receive Date: 20161109
  Receipt Date: 20161109
  Transmission Date: 20170207
  Serious: Yes (Other)
  Sender: FDA-Public Use
  Company Number: JP-BAYER-2016-206860

PATIENT
  Age: 74 Year
  Sex: Female

DRUGS (1)
  1. BAYASPIRIN [Suspect]
     Active Substance: ASPIRIN
     Dosage: UNK
     Route: 048

REACTIONS (4)
  - Post procedural haemorrhage [None]
  - Signet-ring cell carcinoma [None]
  - Aortic aneurysm [None]
  - Acute myocardial infarction [None]

NARRATIVE: CASE EVENT DATE: 201507
